FAERS Safety Report 25910753 (Version 1)
Quarter: 2025Q4

REPORT INFORMATION
  Report Type: Report from Study
  Country: US (occurrence: US)
  Receive Date: 20251013
  Receipt Date: 20251013
  Transmission Date: 20260117
  Serious: Yes (Other)
  Sender: ABBVIE
  Company Number: US-ABBVIE-6499122

PATIENT
  Age: 78 Year
  Sex: Female

DRUGS (1)
  1. SYNTHROID [Suspect]
     Active Substance: LEVOTHYROXINE SODIUM
     Indication: Product used for unknown indication
     Dosage: FORM STRENGTH: 75 MCG
     Route: 048
     Dates: start: 201812

REACTIONS (2)
  - Myocardial infarction [Unknown]
  - Anxiety [Unknown]

NARRATIVE: CASE EVENT DATE: 20250924
